FAERS Safety Report 4575814-8 (Version None)
Quarter: 2005Q1

REPORT INFORMATION
  Report Type: 
  Country: None (occurrence: None)
  Receive Date: 20050201
  Receipt Date: 20050201
  Transmission Date: 20050727
  Serious: Yes (Disabling)
  Sender: FDA-Public Use
  Company Number: None

PATIENT
  Age: 43 Year
  Sex: Female
  Weight: 83.9154 kg

DRUGS (2)
  1. PEG-INTRON [Suspect]
     Indication: HEPATITIS C VIRUS
     Dosage: 1.5  MG WEEKLY INTRAMUSCULAR
     Route: 030
     Dates: start: 20011010, end: 20020530
  2. RIBAVIRIN [Suspect]
     Dosage: 800 DAILY  ORAL
     Route: 048

REACTIONS (5)
  - ASTHMA [None]
  - INCREASED BRONCHIAL SECRETION [None]
  - LUNG DISORDER [None]
  - PNEUMONIA [None]
  - VISUAL ACUITY REDUCED [None]
